FAERS Safety Report 8384335-6 (Version None)
Quarter: 2012Q2

REPORT INFORMATION
  Report Type: 
  Country: None (occurrence: None)
  Receive Date: 20120524
  Receipt Date: 20120514
  Transmission Date: 20120825
  Serious: Yes (Hospitalization, Other)
  Sender: FDA-Public Use
  Company Number: CA-ELI_LILLY_AND_COMPANY-CA201205005279

PATIENT
  Age: 81 Year
  Sex: Female

DRUGS (10)
  1. CALCIUM [Concomitant]
     Dosage: 250 MG, UNKNOWN
  2. ASPIRIN [Concomitant]
     Indication: ARTHRALGIA
     Dosage: 650 MG, UNKNOWN
  3. WELLBUTRIN [Concomitant]
     Dosage: 150 MG, UNKNOWN
  4. M.V.I. [Concomitant]
  5. VITAMIN B5                         /00375501/ [Concomitant]
  6. GLUCOSAMINE SULFATE [Concomitant]
     Dosage: UNK
  7. AVALIDE [Concomitant]
  8. VITAMIN D [Concomitant]
     Dosage: UNK, BID
  9. FORTEO [Suspect]
     Indication: OSTEOPOROSIS
     Dosage: 20 UG, QD
     Route: 058
     Dates: start: 20111007
  10. LOVAZA [Concomitant]
     Dosage: 1000 U, UNKNOWN

REACTIONS (3)
  - MOBILITY DECREASED [None]
  - HEMIPARESIS [None]
  - TRANSIENT ISCHAEMIC ATTACK [None]
